FAERS Safety Report 11816299 (Version 1)
Quarter: 2015Q4

REPORT INFORMATION
  Report Type: Spontaneous
  Country: TW (occurrence: TW)
  Receive Date: 20151209
  Receipt Date: 20151209
  Transmission Date: 20160305
  Serious: Yes (Death, Hospitalization)
  Sender: FDA-Public Use
  Company Number: TW-009507513-1512TWN000554

PATIENT
  Age: 81 Year
  Sex: Female

DRUGS (5)
  1. VANCOMYCIN [Concomitant]
     Active Substance: VANCOMYCIN
  2. TIGECYCLINE. [Concomitant]
     Active Substance: TIGECYCLINE
  3. INVANZ [Suspect]
     Active Substance: ERTAPENEM SODIUM
     Dosage: UNK, UNKNOWN
  4. FLUMARIN [Concomitant]
     Active Substance: FLOMOXEF SODIUM
  5. TIENAM [Suspect]
     Active Substance: CILASTATIN SODIUM\IMIPENEM
     Dosage: UNK, UNKNOWN

REACTIONS (2)
  - Death [Fatal]
  - Dyspnoea [Fatal]
